FAERS Safety Report 4269788-7 (Version None)
Quarter: 2004Q1

REPORT INFORMATION
  Report Type: 
  Country: None (occurrence: None)
  Receive Date: 20040113
  Receipt Date: 20040106
  Transmission Date: 20041129
  Serious: Yes (Death)
  Sender: FDA-Public Use
  Company Number: 04-01-0016

PATIENT
  Age: 72 Year
  Sex: Female

DRUGS (2)
  1. CLOZAPINE [Suspect]
     Indication: BIPOLAR DISORDER
     Dosage: 200-900MG QD ORAL
     Route: 048
     Dates: start: 19980301, end: 20031201
  2. CLOZAPINE [Suspect]
     Indication: SCHIZOAFFECTIVE DISORDER
     Dosage: 200-900MG QD ORAL
     Route: 048
     Dates: start: 19980301, end: 20031201

REACTIONS (1)
  - PNEUMONIA [None]
